FAERS Safety Report 8461496-1 (Version None)
Quarter: 2012Q2

REPORT INFORMATION
  Report Type: 
  Country: None (occurrence: None)
  Receive Date: 20120625
  Receipt Date: 20120611
  Transmission Date: 20120825
  Serious: Yes (Hospitalization)
  Sender: FDA-Public Use
  Company Number: FR-CELGENEUS-056-21880-12042668

PATIENT
  Sex: Male
  Weight: 55 kg

DRUGS (12)
  1. TRAMADOL HCL [Concomitant]
     Indication: BONE PAIN
     Route: 065
  2. REVLIMID [Suspect]
     Route: 048
     Dates: start: 20120319
  3. DEXAMETHASONE [Suspect]
     Indication: MULTIPLE MYELOMA
     Route: 048
     Dates: start: 20110902, end: 20110922
  4. DEXAMETHASONE [Suspect]
     Route: 048
     Dates: start: 20111031, end: 20111120
  5. LYRICA [Concomitant]
     Indication: BONE PAIN
     Route: 065
  6. REVLIMID [Suspect]
     Indication: MULTIPLE MYELOMA
     Dosage: 15 MILLIGRAM
     Route: 048
     Dates: start: 20110902
  7. REVLIMID [Suspect]
     Dosage: 15 MILLIGRAM
     Route: 048
     Dates: start: 20120413
  8. NEXIUM [Concomitant]
     Route: 065
  9. REVLIMID [Suspect]
     Dosage: 15 MILLIGRAM
     Route: 048
     Dates: start: 20120522
  10. PHENOXYMETHYL PENICILLIN [Concomitant]
     Indication: PROPHYLAXIS
     Route: 065
  11. DEXAMETHASONE [Suspect]
     Route: 048
     Dates: start: 20120319
  12. ASPIRIN [Concomitant]
     Indication: PROPHYLAXIS
     Route: 048

REACTIONS (1)
  - GENERALISED OEDEMA [None]
